FAERS Safety Report 5225052-0 (Version None)
Quarter: 2007Q1

REPORT INFORMATION
  Report Type: 
  Country: None (occurrence: None)
  Receive Date: 20070131
  Receipt Date: 20070126
  Transmission Date: 20070707
  Serious: Yes (Hospitalization)
  Sender: FDA-Public Use
  Company Number: IT-GLAXOSMITHKLINE-B0456338A

PATIENT
  Age: 51 Year
  Sex: Male

DRUGS (4)
  1. AVANDIA [Suspect]
     Dosage: 8MG PER DAY
     Route: 048
     Dates: start: 20050301, end: 20050909
  2. CANDESARTAN [Concomitant]
     Dosage: 16MG PER DAY
     Route: 048
  3. GLIMEPIRIDE [Concomitant]
     Dosage: 2MG PER DAY
     Route: 048
  4. METFORMIN HYDROCHLORIDE [Concomitant]
     Dosage: 1500MG PER DAY
     Route: 048

REACTIONS (4)
  - DYSPNOEA [None]
  - ORTHOPNOEA [None]
  - TRANSAMINASES INCREASED [None]
  - WEIGHT INCREASED [None]
